FAERS Safety Report 18644109 (Version 1)
Quarter: 2020Q4

REPORT INFORMATION
  Report Type: Spontaneous
  Country: US (occurrence: US)
  Receive Date: 20201221
  Receipt Date: 20201221
  Transmission Date: 20210114
  Serious: Yes (Other)
  Sender: FDA-Public Use
  Company Number: US-PURDUE-USA-2020-0171949

PATIENT
  Sex: Male

DRUGS (4)
  1. OXYCONTIN [Suspect]
     Active Substance: OXYCODONE HYDROCHLORIDE
     Indication: PAIN
     Dosage: UNK
     Route: 048
  2. OXYCODONE HCL TABLETS (RHODES 91-490) [Suspect]
     Active Substance: OXYCODONE HYDROCHLORIDE
     Indication: BREAKTHROUGH PAIN
     Dosage: 20 MG, UNK
     Route: 048
  3. OXYCODONE HCL CR TABLETS (SIMILAR TO NDA 22-272) [Suspect]
     Active Substance: OXYCODONE HYDROCHLORIDE
     Indication: PAIN
     Dosage: UNK
     Route: 048
  4. OXYIR [Suspect]
     Active Substance: OXYCODONE HYDROCHLORIDE
     Indication: PAIN
     Dosage: UNK
     Route: 065

REACTIONS (19)
  - Libido decreased [Unknown]
  - Withdrawal syndrome [Unknown]
  - Dementia [Unknown]
  - Androgen deficiency [Unknown]
  - Vitamin B12 deficiency [Unknown]
  - Asthenia [Unknown]
  - Hypertension [Unknown]
  - Depression [Unknown]
  - Memory impairment [Unknown]
  - Myocardial infarction [Unknown]
  - Mood swings [Unknown]
  - Confusional state [Unknown]
  - Drug dependence [Unknown]
  - Sleep apnoea syndrome [Unknown]
  - Rash [Unknown]
  - Overdose [Unknown]
  - Amnesia [Unknown]
  - Personality change [Unknown]
  - Constipation [Unknown]
